FAERS Safety Report 7564522-7 (Version None)
Quarter: 2011Q2

REPORT INFORMATION
  Report Type: 
  Country: None (occurrence: None)
  Receive Date: 20110622
  Receipt Date: 20100505
  Transmission Date: 20111010
  Serious: Yes (Death)
  Sender: FDA-Public Use
  Company Number: US-MYLANLABS-2010S1007884

PATIENT
  Age: 78 Year
  Sex: Female

DRUGS (4)
  1. DAILY MULTIVITAMIN [Concomitant]
     Route: 048
  2. LORAZEPAM [Concomitant]
     Route: 048
  3. METOPROLOL TARTRATE [Concomitant]
     Indication: HYPERTENSION
     Route: 048
  4. CLOZAPINE [Suspect]
     Indication: DEMENTIA
     Route: 048

REACTIONS (1)
  - DEMENTIA [None]
